FAERS Safety Report 22129739 (Version 1)
Quarter: 2023Q1

REPORT INFORMATION
  Report Type: Spontaneous
  Country: US (occurrence: None)
  Receive Date: 20230322
  Receipt Date: 20230322
  Transmission Date: 20230418
  Serious: Yes (Other)
  Sender: FDA-Public Use
  Company Number: None

PATIENT
  Age: 37 Year
  Sex: Female

DRUGS (2)
  1. VITAMINS [Suspect]
     Active Substance: VITAMINS
     Indication: Nausea
  2. VITAMINS [Suspect]
     Active Substance: VITAMINS
     Indication: Vomiting

REACTIONS (3)
  - Dyspnoea [None]
  - Chest discomfort [None]
  - Infusion related reaction [None]

NARRATIVE: CASE EVENT DATE: 20230320
